FAERS Safety Report 6129109-1 (Version None)
Quarter: 2009Q1

REPORT INFORMATION
  Report Type: 
  Country: None (occurrence: None)
  Receive Date: 20090324
  Receipt Date: 20090319
  Transmission Date: 20090719
  Serious: Yes (Other)
  Sender: FDA-Public Use
  Company Number: US-ALLERGAN-0900839US

PATIENT
  Sex: Female
  Weight: 61.224 kg

DRUGS (9)
  1. BOTOX [Suspect]
     Indication: MUSCLE SPASTICITY
     Dosage: 400 UNITS, SINGLE
     Route: 030
     Dates: start: 20080716, end: 20080716
  2. BOTOX [Suspect]
     Dosage: 200 UNITS, SINGLE
     Route: 030
     Dates: start: 20080514, end: 20080514
  3. BOTOX [Suspect]
     Indication: HEMIPARESIS
  4. IMURAN [Concomitant]
     Indication: SYSTEMIC LUPUS ERYTHEMATOSUS
     Dosage: 50 MG, BID
     Route: 048
  5. HYDROXYCHLOROQUINE [Concomitant]
     Indication: SYSTEMIC LUPUS ERYTHEMATOSUS
     Dosage: 200 MG, BID
     Route: 048
  6. AGGRENOX [Concomitant]
     Indication: CEREBROVASCULAR ACCIDENT PROPHYLAXIS
     Dosage: UNK, BID
     Route: 048
  7. SYNTHROID [Concomitant]
     Dosage: 112 UG, QD
     Route: 048
  8. NORVASC [Concomitant]
     Dosage: 10, QD
     Route: 048
  9. LISINOPRIL [Concomitant]
     Dosage: 40, QD
     Route: 048

REACTIONS (6)
  - AGEUSIA [None]
  - ANOREXIA [None]
  - ANOSMIA [None]
  - DYSGEUSIA [None]
  - HYPOAESTHESIA ORAL [None]
  - WEIGHT DECREASED [None]
